FAERS Safety Report 15814542 (Version 1)
Quarter: 2019Q1

REPORT INFORMATION
  Report Type: Spontaneous
  Country: GB (occurrence: GB)
  Receive Date: 20190111
  Receipt Date: 20190111
  Transmission Date: 20190417
  Serious: Yes (Hospitalization)
  Sender: FDA-Public Use
  Company Number: GB-009507513-1901GBR001801

PATIENT
  Age: 74 Year
  Sex: Female

DRUGS (3)
  1. SINEMET [Suspect]
     Active Substance: CARBIDOPA\LEVODOPA
     Indication: PARKINSON^S DISEASE
     Dosage: 5 DOSAGE FORM, QD
     Route: 048
  2. BENSERAZIDE HYDROCHLORIDE (+) LEVODOPA [Suspect]
     Active Substance: BENSERAZIDE\LEVODOPA
     Indication: PARKINSON^S DISEASE
     Dosage: 250 MILLIGRAM, QD
     Route: 048
  3. SINEMET CR [Suspect]
     Active Substance: CARBIDOPA\LEVODOPA
     Indication: PARKINSON^S DISEASE
     Dosage: 50/200 AT NIGHT
     Route: 048

REACTIONS (5)
  - Agitation [Unknown]
  - Dry mouth [Unknown]
  - Nausea [Unknown]
  - Restlessness [Unknown]
  - Dystonia [Recovered/Resolved]

NARRATIVE: CASE EVENT DATE: 20181212
